FAERS Safety Report 6739474-X (Version None)
Quarter: 2010Q2

REPORT INFORMATION
  Report Type: 
  Country: None (occurrence: None)
  Receive Date: 20100521
  Receipt Date: 20100510
  Transmission Date: 20101027
  Serious: Yes (Hospitalization)
  Sender: FDA-Public Use
  Company Number: 7004536

PATIENT
  Age: 55 Year
  Sex: Female
  Weight: 98 kg

DRUGS (7)
  1. REBIF [Suspect]
     Indication: MULTIPLE SCLEROSIS
     Dosage: 44 MCG, 3 IN 1 WK, SUBCUTANEOUS
     Route: 058
     Dates: start: 20030113
  2. NUVIGIL [Concomitant]
  3. CELLCEPT [Concomitant]
  4. CYMBALTA [Concomitant]
  5. LYRICA [Concomitant]
  6. ALLEGRA [Concomitant]
  7. STEROIDS (CORTICOSTEROID) [Concomitant]

REACTIONS (3)
  - CORONARY ARTERY OCCLUSION [None]
  - FATIGUE [None]
  - HYPERTENSION [None]
